FAERS Safety Report 8478661-X (Version None)
Quarter: 2012Q2

REPORT INFORMATION
  Report Type: 
  Country: None (occurrence: None)
  Receive Date: 20120629
  Receipt Date: 20120619
  Transmission Date: 20120825
  Serious: Yes (Hospitalization)
  Sender: FDA-Public Use
  Company Number: GXBR2012US001557

PATIENT
  Sex: Female
  Weight: 82.54 kg

DRUGS (7)
  1. LIPITOR [Concomitant]
     Indication: BLOOD CHOLESTEROL INCREASED
     Dosage: 10 MG, QD
     Route: 048
  2. EXTRA STRENGTH TYLENOL [Concomitant]
     Indication: MUSCULOSKELETAL STIFFNESS
     Dosage: UNK MG, BID
     Route: 048
  3. LISINOPRIL [Concomitant]
     Indication: HYPERTENSION
     Dosage: 20 MG, QD
     Route: 048
  4. ENOXAPARIN SODIUM [Suspect]
     Dosage: 80 MG, QD
     Route: 058
     Dates: start: 20120423, end: 20120423
  5. CARBIDOPA + LEVODOPA [Concomitant]
     Indication: PARKINSONISM
     Dosage: UNK MG, TID
     Route: 048
  6. ENOXAPARIN SODIUM [Suspect]
     Indication: ANTICOAGULANT THERAPY
     Dosage: 80 MG, BID
     Route: 058
     Dates: start: 20120422, end: 20120422
  7. ARICEPT [Concomitant]
     Indication: NERVOUS SYSTEM DISORDER
     Dosage: 11.5 MG, QD
     Route: 048

REACTIONS (12)
  - SKIN DISCOLOURATION [None]
  - HEART RATE DECREASED [None]
  - HAEMATOMA [None]
  - VOMITING [None]
  - URINARY INCONTINENCE [None]
  - INJECTION SITE PAIN [None]
  - LOSS OF CONSCIOUSNESS [None]
  - PAIN IN EXTREMITY [None]
  - NODULE [None]
  - NAUSEA [None]
  - OEDEMA PERIPHERAL [None]
  - FAECAL INCONTINENCE [None]
